FAERS Safety Report 23446082 (Version 2)
Quarter: 2024Q1

REPORT INFORMATION
  Report Type: Spontaneous
  Country: FR (occurrence: None)
  Receive Date: 20240126
  Receipt Date: 20240212
  Transmission Date: 20240410
  Serious: Yes (Hospitalization, Disabling, Other)
  Sender: FDA-Public Use
  Company Number: 2024A020469

PATIENT
  Age: 1 Month
  Sex: Female
  Weight: 3.2 kg

DRUGS (1)
  1. BEYFORTUS [Suspect]
     Active Substance: NIRSEVIMAB-ALIP
     Dosage: UNK UNK, TOTAL
     Dates: start: 20231105, end: 20231105

REACTIONS (3)
  - Respiratory syncytial virus bronchiolitis [Recovered/Resolved]
  - Poor feeding infant [Recovering/Resolving]
  - Dependence on oxygen therapy [Recovering/Resolving]

NARRATIVE: CASE EVENT DATE: 20231105
